FAERS Safety Report 6417357-2 (Version None)
Quarter: 2009Q4

REPORT INFORMATION
  Report Type: 
  Country: None (occurrence: None)
  Receive Date: 20091028
  Receipt Date: 20091016
  Transmission Date: 20100525
  Serious: Yes (Other)
  Sender: FDA-Public Use
  Company Number: CA-PFIZER INC-2009284560

PATIENT

DRUGS (1)
  1. AROMASIN [Suspect]
     Dosage: UNK
     Dates: start: 20091013

REACTIONS (2)
  - DYSPNOEA [None]
  - SKIN REACTION [None]
